FAERS Safety Report 18802577 (Version 1)
Quarter: 2021Q1

REPORT INFORMATION
  Report Type: Spontaneous
  Country: US (occurrence: US)
  Receive Date: 20210129
  Receipt Date: 20210129
  Transmission Date: 20210419
  Serious: No
  Sender: FDA-Public Use
  Company Number: US-DRREDDYS-USA/USA/21/0131083

PATIENT
  Age: 78 Year
  Sex: Female
  Weight: 60.75 kg

DRUGS (3)
  1. LOSARTAN. [Concomitant]
     Active Substance: LOSARTAN
     Indication: PRODUCT USED FOR UNKNOWN INDICATION
  2. EUTHYROX [Concomitant]
     Active Substance: LEVOTHYROXINE SODIUM
     Indication: PRODUCT USED FOR UNKNOWN INDICATION
  3. IBANDRONATE SODIUM TABLETS 150 MG [Suspect]
     Active Substance: IBANDRONATE SODIUM
     Indication: PRODUCT USED FOR UNKNOWN INDICATION
     Route: 048
     Dates: start: 20200607, end: 202012

REACTIONS (8)
  - Musculoskeletal stiffness [Unknown]
  - Memory impairment [Unknown]
  - Arthralgia [Unknown]
  - Gait disturbance [Unknown]
  - Herpes simplex [Unknown]
  - Pain [Unknown]
  - Paraesthesia [Unknown]
  - Peripheral coldness [Unknown]
